FAERS Safety Report 4851970-9 (Version None)
Quarter: 2005Q4

REPORT INFORMATION
  Report Type: 
  Country: None (occurrence: None)
  Receive Date: 20051123
  Receipt Date: 20050926
  Transmission Date: 20060501
  Serious: No
  Sender: FDA-Public Use
  Company Number: 218069

PATIENT
  Age: 45 Year
  Sex: Female

DRUGS (1)
  1. RAPTIVA [Suspect]
     Indication: PSORIASIS
     Dosage: 0.71 ML, 1/WEEK
     Dates: start: 20050801

REACTIONS (1)
  - PSORIASIS [None]
